FAERS Safety Report 4326074-4 (Version None)
Quarter: 2004Q1

REPORT INFORMATION
  Report Type: 
  Country: None (occurrence: None)
  Receive Date: 20040322
  Receipt Date: 20040114
  Transmission Date: 20041129
  Serious: No
  Sender: FDA-Public Use
  Company Number: US-JNJFOC-20040103055

PATIENT
  Age: 36 Year
  Sex: Female
  Weight: 99.7913 kg

DRUGS (7)
  1. ORTHO TRI-CYCLEN LO [Suspect]
     Indication: CONTRACEPTION
     Dosage: 1 DOSE(S), 1 IN 1 DAY, ORAL
     Route: 048
     Dates: start: 20031101
  2. LEXAPRO (ALL OTHER THERAPEUTIC PRODUCTS) [Concomitant]
  3. TRAZADONE (TRAZODONE) [Concomitant]
  4. TRILEPTIL (OXCARBAZEPINE) [Concomitant]
  5. CLONOPIN (CLONAZEPAM) [Concomitant]
  6. ZOMAG (ZOMEPIRAC SODIUM) [Concomitant]
  7. SEROQUEL [Concomitant]

REACTIONS (2)
  - DYSMENORRHOEA [None]
  - WEIGHT INCREASED [None]
